FAERS Safety Report 24918868 (Version 1)
Quarter: 2025Q1

REPORT INFORMATION
  Report Type: Report from Study
  Country: ES (occurrence: ES)
  Receive Date: 20250204
  Receipt Date: 20250204
  Transmission Date: 20250409
  Serious: Yes (Hospitalization)
  Sender: AMNEAL
  Company Number: ES-AMNEAL PHARMACEUTICALS-2024-AMRX-04781

PATIENT

DRUGS (5)
  1. ONGENTYS [Suspect]
     Active Substance: OPICAPONE
     Indication: Parkinson^s disease
     Dosage: 50 MILLIGRAM, QD
     Route: 065
     Dates: start: 20230721
  2. BENSERAZIDE\LEVODOPA [Concomitant]
     Active Substance: BENSERAZIDE\LEVODOPA
     Indication: Parkinson^s disease
     Route: 065
     Dates: start: 20180703
  3. SAFINAMIDE [Concomitant]
     Active Substance: SAFINAMIDE
     Indication: Parkinson^s disease
     Route: 065
     Dates: start: 20160715
  4. MELATONIN [Concomitant]
     Active Substance: MELATONIN
     Indication: Prophylaxis
     Route: 065
     Dates: start: 20161115
  5. SUNIDERMA [Concomitant]
     Indication: Lichen planus
     Route: 065
     Dates: start: 201612

REACTIONS (9)
  - Femur fracture [Recovering/Resolving]
  - Abdominal pain upper [Unknown]
  - Breath odour [Unknown]
  - Muscle rigidity [Unknown]
  - Photosensitivity reaction [Unknown]
  - Cataract operation [Unknown]
  - Lacrimation increased [Unknown]
  - Back pain [Recovered/Resolved]
  - Tremor [Recovered/Resolved]

NARRATIVE: CASE EVENT DATE: 20230803
